FAERS Safety Report 18185680 (Version 1)
Quarter: 2020Q3

REPORT INFORMATION
  Report Type: Spontaneous
  Country: DE (occurrence: DE)
  Receive Date: 20200824
  Receipt Date: 20200824
  Transmission Date: 20201103
  Serious: Yes (Hospitalization)
  Sender: FDA-Public Use
  Company Number: DE-TEVA-2020-DE-1817142

PATIENT
  Age: 78 Year
  Sex: Male

DRUGS (6)
  1. SORTIS 20 [Concomitant]
     Dosage: 20 MILLIGRAM DAILY; 0?0?1?0 ALTERNATING WITH SORTIS 10MG
  2. SORTIS 10MG [Concomitant]
     Dosage: 10 MILLIGRAM DAILY; 0?0?1?0
  3. CANDESARTAN. [Concomitant]
     Active Substance: CANDESARTAN
     Dosage: 16 MILLIGRAM DAILY; 1?0?0?0
  4. CONCOR 5MG [Concomitant]
     Dosage: 10 MILLIGRAM DAILY; 1?0?1?0
  5. DEXAMETHASON [Suspect]
     Active Substance: DEXAMETHASONE
     Dosage: NK MG, DISCONTINUED
     Route: 065
  6. PHENPROCOUMON [Concomitant]
     Active Substance: PHENPROCOUMON
     Dosage: 3 MG, BY VALUE

REACTIONS (3)
  - Arrhythmia [Recovering/Resolving]
  - Tachycardia [Recovering/Resolving]
  - Hypertension [Recovering/Resolving]
